FAERS Safety Report 8193817-1 (Version None)
Quarter: 2012Q1

REPORT INFORMATION
  Report Type: 
  Country: None (occurrence: None)
  Receive Date: 20120308
  Receipt Date: 20120229
  Transmission Date: 20120608
  Serious: Yes (Hospitalization, Congenital Anomaly)
  Sender: FDA-Public Use
  Company Number: GXKR2012DE000986

PATIENT

DRUGS (9)
  1. NUX VOMICA HOMACCORD [Concomitant]
  2. PREDNISOLONE [Suspect]
     Dosage: MATERNAL DOSE: FROM 10JAN2010 TO 03FEB2010: 5 MG DAILY
     Route: 064
  3. PREDNISOLONE [Suspect]
     Dosage: MATERNAL DOSE: 17FEB2010 TO 20JUL2010: 10 MG/DAY
  4. FOLIC ACID [Concomitant]
     Dosage: MATERNAL DOSE: 0.8 MG/D
  5. PREDNISOLONE [Suspect]
     Dosage: MATERNAL DOSE: 03FEB2010 TO 12FEB2010: 10 MG/DAY
  6. PREDNISOLONE [Suspect]
     Dosage: MATERNAL DOSE: 12FEB2010 TO 16FEB2010: 5 MG/DAY
  7. MESALAMINE [Concomitant]
     Dosage: MATERNAL DOSE: 3000 MG/DAY
     Route: 064
  8. BUDENOFALK [Concomitant]
     Dosage: MATERNAL DOSE: 6 MG/DAY
     Route: 064
  9. OMEPRAZOLE [Concomitant]
     Dosage: MATERNAL DOSE: 20 MG/DAY
     Route: 064

REACTIONS (3)
  - GASTROSCHISIS [None]
  - PREMATURE BABY [None]
  - FOETAL EXPOSURE DURING PREGNANCY [None]
